FAERS Safety Report 21090604 (Version 1)
Quarter: 2022Q3

REPORT INFORMATION
  Report Type: Report from Study
  Country: CA (occurrence: CA)
  Receive Date: 20220716
  Receipt Date: 20220716
  Transmission Date: 20221026
  Serious: Yes (Death, Other)
  Sender: FDA-Public Use
  Company Number: CA-BRISTOL-MYERS SQUIBB COMPANY-2022-074168

PATIENT
  Age: 59 Year
  Sex: Female
  Weight: 49.1 kg

DRUGS (1)
  1. OPDIVO [Suspect]
     Active Substance: NIVOLUMAB
     Indication: Gastric cancer
     Route: 042
     Dates: start: 20220309, end: 20220628

REACTIONS (1)
  - Death [Fatal]

NARRATIVE: CASE EVENT DATE: 20220706
